FAERS Safety Report 25747392 (Version 1)
Quarter: 2025Q3

REPORT INFORMATION
  Report Type: Spontaneous
  Country: JP (occurrence: JP)
  Receive Date: 20250901
  Receipt Date: 20250901
  Transmission Date: 20251021
  Serious: Yes (Other)
  Sender: UCB
  Company Number: JP-UCBJ-CD202511290UCBPHAPROD

PATIENT
  Age: 4 Decade
  Sex: Male
  Weight: 96 kg

DRUGS (6)
  1. FINTEPLA [Suspect]
     Active Substance: FENFLURAMINE
     Indication: Lennox-Gastaut syndrome
     Dosage: 0.2 MILLIGRAM/KILOGRAM, ONCE DAILY (QD)
     Route: 048
  2. FINTEPLA [Suspect]
     Active Substance: FENFLURAMINE
     Dosage: 0.27 MILLIGRAM/KILOGRAM, ONCE DAILY (QD)
     Route: 048
  3. ZONISAMIDE [Concomitant]
     Active Substance: ZONISAMIDE
     Indication: Product used for unknown indication
  4. PERAMPANEL [Concomitant]
     Active Substance: PERAMPANEL
     Indication: Product used for unknown indication
  5. VIMPAT [Concomitant]
     Active Substance: LACOSAMIDE
     Indication: Product used for unknown indication
  6. VALPROATE SODIUM [Concomitant]
     Active Substance: VALPROATE SODIUM
     Indication: Product used for unknown indication

REACTIONS (1)
  - Epilepsy [Unknown]
